FAERS Safety Report 9606017 (Version 1)
Quarter: 2013Q4

REPORT INFORMATION
  Report Type: Spontaneous
  Country: US (occurrence: US)
  Receive Date: 20131008
  Receipt Date: 20131008
  Transmission Date: 20140711
  Serious: No
  Sender: FDA-Public Use
  Company Number: US-AMGEN-USASP2013039654

PATIENT
  Sex: Female

DRUGS (3)
  1. PROLIA [Suspect]
     Indication: OSTEOPOROSIS POSTMENOPAUSAL
     Dosage: UNK
     Dates: start: 2010
  2. TOPROL [Concomitant]
  3. VITAMINS                           /00067501/ [Concomitant]

REACTIONS (3)
  - Body height decreased [Unknown]
  - Arthritis [Unknown]
  - Fatigue [Unknown]
